FAERS Safety Report 11292596 (Version 1)
Quarter: 2015Q3

REPORT INFORMATION
  Report Type: Spontaneous
  Country: US (occurrence: US)
  Receive Date: 20150722
  Receipt Date: 20150722
  Transmission Date: 20151125
  Serious: No
  Sender: FDA-Public Use
  Company Number: US-EISAI MEDICAL RESEARCH-EC-2015-008561

PATIENT
  Age: 60 Year
  Sex: Female

DRUGS (9)
  1. METHYLPHENIDATE ER [Concomitant]
     Active Substance: METHYLPHENIDATE
     Indication: DYSLEXIA
  2. FORFIVO [Concomitant]
     Indication: DEPRESSION
  3. AMITRIPTYLINE [Concomitant]
     Active Substance: AMITRIPTYLINE
     Indication: INSOMNIA
  4. ZETIA [Concomitant]
     Active Substance: EZETIMIBE
     Indication: BLOOD CHOLESTEROL INCREASED
  5. KLONOPIN [Concomitant]
     Active Substance: CLONAZEPAM
     Indication: INSOMNIA
  6. MELOXICAM. [Concomitant]
     Active Substance: MELOXICAM
     Indication: MYALGIA
  7. TERAZOSIN [Concomitant]
     Active Substance: TERAZOSIN\TERAZOSIN HYDROCHLORIDE
     Indication: HYPERHIDROSIS
  8. BELVIQ [Suspect]
     Active Substance: LORCASERIN HYDROCHLORIDE
     Indication: WEIGHT DECREASED
     Route: 048
     Dates: start: 20150616
  9. PRAZOSIN [Concomitant]
     Active Substance: PRAZOSIN
     Indication: INSOMNIA

REACTIONS (1)
  - Muscle tightness [Not Recovered/Not Resolved]

NARRATIVE: CASE EVENT DATE: 20150706
